FAERS Safety Report 15618267 (Version 1)
Quarter: 2018Q4

REPORT INFORMATION
  Report Type: Spontaneous
  Country: GB (occurrence: GB)
  Receive Date: 20181114
  Receipt Date: 20181114
  Transmission Date: 20190205
  Serious: Yes (Hospitalization, Other)
  Sender: FDA-Public Use
  Company Number: GB-IMPAX LABORATORIES, LLC-2018-IPXL-03755

PATIENT
  Age: 39 Year
  Sex: Female

DRUGS (2)
  1. CHLOROQUINE PHOSPHATE. [Suspect]
     Active Substance: CHLOROQUINE PHOSPHATE
     Indication: INTENTIONAL OVERDOSE
     Dosage: 2.5 GRAM, UNK
     Route: 065
  2. MALOPRIM [Suspect]
     Active Substance: DAPSONE\PYRIMETHAMINE
     Indication: INTENTIONAL OVERDOSE
     Dosage: 100 MILLIGRAM, UNK
     Route: 065

REACTIONS (5)
  - Methaemoglobinaemia [Recovering/Resolving]
  - Loss of consciousness [Recovering/Resolving]
  - Electrocardiogram QRS complex shortened [Recovering/Resolving]
  - Intentional overdose [Recovering/Resolving]
  - Sinus tachycardia [Recovering/Resolving]
